FAERS Safety Report 17895844 (Version 6)
Quarter: 2022Q3

REPORT INFORMATION
  Report Type: Spontaneous
  Country: ZA (occurrence: ZA)
  Receive Date: 20200615
  Receipt Date: 20220906
  Transmission Date: 20221027
  Serious: Yes (Other)
  Sender: FDA-Public Use
  Company Number: ZA-PFIZER INC-2020230605

PATIENT
  Age: 55 Year
  Sex: Female
  Weight: 90 kg

DRUGS (4)
  1. METHOTREXATE SODIUM [Suspect]
     Active Substance: METHOTREXATE SODIUM
     Indication: Rheumatoid arthritis
     Dosage: 25 MG, WEEKLY
     Dates: start: 1970
  2. INFLIXIMAB [Suspect]
     Active Substance: INFLIXIMAB
     Indication: Rheumatoid arthritis
     Dosage: UNK
     Dates: start: 2012, end: 2013
  3. ARAVA [Concomitant]
     Active Substance: LEFLUNOMIDE
     Indication: Rheumatoid arthritis
     Dosage: 20 MG, DAILY
     Dates: start: 202001
  4. ENBREL [Concomitant]
     Active Substance: ETANERCEPT
     Indication: Rheumatoid arthritis
     Dosage: 50 MG, (BIWEEKLY)
     Route: 058
     Dates: start: 20200803

REACTIONS (6)
  - Pneumonia klebsiella [Unknown]
  - Carotid artery occlusion [Unknown]
  - Type 2 diabetes mellitus [Unknown]
  - Knee arthroplasty [Unknown]
  - Drug ineffective [Unknown]
  - Osteoporosis [Unknown]

NARRATIVE: CASE EVENT DATE: 20050101
